FAERS Safety Report 9261190 (Version 4)
Quarter: 2013Q3

REPORT INFORMATION
  Report Type: Spontaneous
  Country: GB (occurrence: GB)
  Receive Date: 20130429
  Receipt Date: 20130705
  Transmission Date: 20140515
  Serious: Yes (Other)
  Sender: FDA-Public Use
  Company Number: PHFR2013GB002429

PATIENT
  Age: 29 Year
  Sex: Female

DRUGS (6)
  1. CLOZARIL [Suspect]
     Indication: SCHIZOPHRENIA, PARANOID TYPE
     Dosage: UNK
     Route: 048
     Dates: start: 20091027
  2. CLOZARIL [Suspect]
     Dosage: 350 MG, DAILY
     Dates: start: 2009
  3. CLOZARIL [Suspect]
     Dosage: 250 MG, DAILY
     Route: 048
     Dates: end: 20130416
  4. AMISULPRIDE [Suspect]
     Dosage: 50 MG, DAILY
     Route: 048
  5. ANTIPSYCHOTICS [Concomitant]
     Dosage: UNK UKN, UNK
  6. METFORMIN [Concomitant]
     Indication: DIABETES MELLITUS
     Dosage: 1000 MG
     Route: 048

REACTIONS (5)
  - Cardiac disorder [Recovered/Resolved]
  - Palpitations [Recovered/Resolved]
  - Electrocardiogram QT prolonged [Recovered/Resolved]
  - Schizophrenia [Not Recovered/Not Resolved]
  - Hypertension [Not Recovered/Not Resolved]
